FAERS Safety Report 9909014 (Version 2)
Quarter: 2014Q1

REPORT INFORMATION
  Report Type: Spontaneous
  Country: SE (occurrence: SE)
  Receive Date: 20140219
  Receipt Date: 20140219
  Transmission Date: 20141002
  Serious: Yes (Other)
  Sender: FDA-Public Use
  Company Number: SE-ABBVIE-13P-150-1139682-00

PATIENT
  Age: 41 Year
  Sex: Female

DRUGS (5)
  1. HUMIRA [Suspect]
     Indication: SPONDYLITIS
     Route: 058
     Dates: start: 20100201, end: 20130630
  2. CIKLOSPORIN IVAX [Concomitant]
     Indication: PRODUCT USED FOR UNKNOWN INDICATION
  3. AZATIOPRIN [Concomitant]
     Indication: PRODUCT USED FOR UNKNOWN INDICATION
  4. PREDNISOLONE [Concomitant]
     Indication: PRODUCT USED FOR UNKNOWN INDICATION
  5. CIMZIA [Concomitant]
     Dates: start: 20130715

REACTIONS (3)
  - Fatigue [Recovered/Resolved]
  - Migraine [Recovered/Resolved]
  - Depressed mood [Recovered/Resolved]
